FAERS Safety Report 5062658-6 (Version None)
Quarter: 2006Q3

REPORT INFORMATION
  Report Type: 
  Country: None (occurrence: None)
  Receive Date: 20060721
  Receipt Date: 20060707
  Transmission Date: 20061208
  Serious: Yes (Other)
  Sender: FDA-Public Use
  Company Number: 2006S1000127

PATIENT
  Age: 77 Year
  Sex: Female

DRUGS (6)
  1. CUBICIN [Suspect]
     Indication: STREPTOCOCCAL BACTERAEMIA
     Dosage: 400 MG;Q24H;IV
     Route: 042
     Dates: start: 20050525, end: 20050710
  2. LEVOFLOXACIN [Concomitant]
  3. VANCOMYCIN [Concomitant]
  4. GENTAMICIN [Concomitant]
  5. AMIKACIN [Concomitant]
  6. NITROFURANTOIN [Concomitant]

REACTIONS (7)
  - COLON CANCER [None]
  - CULTURE URINE POSITIVE [None]
  - ESCHERICHIA INFECTION [None]
  - FUNGAL INFECTION [None]
  - GENERAL PHYSICAL HEALTH DETERIORATION [None]
  - PNEUMONIA ASPIRATION [None]
  - REFUSAL OF TREATMENT BY PATIENT [None]
